FAERS Safety Report 9277006 (Version 1)
Quarter: 2013Q2

REPORT INFORMATION
  Report Type: Spontaneous
  Country: CA (occurrence: CA)
  Receive Date: 20130507
  Receipt Date: 20130507
  Transmission Date: 20140414
  Serious: Yes (Other)
  Sender: FDA-Public Use
  Company Number: CHPA2013CA007625

PATIENT
  Age: 57 Year
  Sex: Female

DRUGS (1)
  1. BUCKLEY^S UNKNOWN [Suspect]
     Dosage: UNK, UNK
     Route: 048

REACTIONS (2)
  - Complication of pregnancy [Unknown]
  - Headache [Unknown]
